FAERS Safety Report 5160378-0 (Version None)
Quarter: 2006Q4

REPORT INFORMATION
  Report Type: 
  Country: None (occurrence: None)
  Receive Date: 20061121
  Receipt Date: 20061114
  Transmission Date: 20070319
  Serious: Yes (Death)
  Sender: FDA-Public Use
  Company Number: 163-21880-06110722

PATIENT
  Age: 70 Year
  Sex: Male

DRUGS (1)
  1. REVLIMID                   (LENALIDOMIDE) [Suspect]
     Indication: MYELODYSPLASTIC SYNDROME
     Dosage: 10 MG, 2 IN 1 D, ORAL
     Route: 048
     Dates: start: 20061018, end: 20060101

REACTIONS (1)
  - DEATH [None]
